FAERS Safety Report 13061316 (Version 2)
Quarter: 2024Q2

REPORT INFORMATION
  Report Type: Spontaneous
  Country: IT (occurrence: IT)
  Receive Date: 20161226
  Receipt Date: 20240423
  Transmission Date: 20240716
  Serious: Yes (Death, Hospitalization)
  Sender: FDA-Public Use
  Company Number: IT-ACCORD-046798

PATIENT
  Age: 48 Year
  Sex: Female

DRUGS (2)
  1. MYCOPHENOLATE MOFETIL [Suspect]
     Active Substance: MYCOPHENOLATE MOFETIL
     Indication: Undifferentiated connective tissue disease
  2. PREDNISONE [Suspect]
     Active Substance: PREDNISONE
     Indication: Undifferentiated connective tissue disease

REACTIONS (6)
  - Cerebral toxoplasmosis [Fatal]
  - Multiple organ dysfunction syndrome [Fatal]
  - Hydrocephalus [Fatal]
  - Hemiparesis [Fatal]
  - White matter lesion [Fatal]
  - Cerebral haemorrhage [Fatal]
